FAERS Safety Report 10663541 (Version 2)
Quarter: 2015Q4

REPORT INFORMATION
  Report Type: Report from Study
  Country: US (occurrence: US)
  Receive Date: 20141219
  Receipt Date: 20151014
  Transmission Date: 20160304
  Serious: Yes (Hospitalization, Other)
  Sender: FDA-Public Use
  Company Number: US-GILEAD-2014-0126353

PATIENT
  Age: 71 Year
  Sex: Male
  Weight: 106.4 kg

DRUGS (28)
  1. FOLIC ACID. [Concomitant]
     Active Substance: FOLIC ACID
  2. METOPROLOL [Concomitant]
     Active Substance: METOPROLOL
  3. TACROLIMUS. [Concomitant]
     Active Substance: TACROLIMUS
     Dosage: UNK
  4. MAGNESIUM HYDROXIDE. [Concomitant]
     Active Substance: MAGNESIUM HYDROXIDE
  5. ONDANSETRON [Concomitant]
     Active Substance: ONDANSETRON
  6. CELLCEPT [Concomitant]
     Active Substance: MYCOPHENOLATE MOFETIL\MYCOPHENOLATE MOFETIL HYDROCHLORIDE
     Dosage: UNK
  7. DOCUSATE [Concomitant]
     Active Substance: DOCUSATE
  8. METOLAZONE. [Concomitant]
     Active Substance: METOLAZONE
  9. MULTIVITAMIN                       /07504101/ [Concomitant]
     Active Substance: VITAMINS
  10. PANTOPRAZOLE [Concomitant]
     Active Substance: PANTOPRAZOLE SODIUM
  11. PREDNISONE. [Concomitant]
     Active Substance: PREDNISONE
  12. COUMADIN [Concomitant]
     Active Substance: WARFARIN SODIUM
  13. ACETAMINOPHEN. [Concomitant]
     Active Substance: ACETAMINOPHEN
  14. SODIUM CHLORIDE. [Concomitant]
     Active Substance: SODIUM CHLORIDE
  15. AZTREONAM LYSINE [Suspect]
     Active Substance: AZTREONAM LYSINE
     Dosage: 75 MG, TID
     Route: 055
     Dates: start: 20140918, end: 20141015
  16. AZTREONAM LYSINE [Suspect]
     Active Substance: AZTREONAM LYSINE
     Dosage: 75 MG, TID
     Route: 055
     Dates: start: 20141113, end: 20141201
  17. ASCORBIC ACID. [Concomitant]
     Active Substance: ASCORBIC ACID
  18. BISACODYL. [Concomitant]
     Active Substance: BISACODYL
  19. CIPROFLOXACIN. [Concomitant]
     Active Substance: CIPROFLOXACIN
  20. AZTREONAM LYSINE [Suspect]
     Active Substance: AZTREONAM LYSINE
     Indication: IDIOPATHIC PULMONARY FIBROSIS
     Dosage: 75 MG, TID
     Route: 055
     Dates: start: 20140724, end: 20140820
  21. ALUMINIUM HYDROXIDE W/MAGNESIUM HYD/00416501/ [Concomitant]
  22. CALCIUM CARBONATE. [Concomitant]
     Active Substance: CALCIUM CARBONATE
  23. POLYETHYLENE GLYCOL [Concomitant]
     Active Substance: POLYETHYLENE GLYCOLS
  24. VALGANCICLOVIR [Concomitant]
     Active Substance: VALGANCICLOVIR
  25. FUROSEMIDE. [Concomitant]
     Active Substance: FUROSEMIDE
  26. ESCITALOPRAM [Concomitant]
     Active Substance: ESCITALOPRAM OXALATE
  27. HYDROCODONE BITARTRATE AND ACETAMINOPHEN [Concomitant]
     Active Substance: ACETAMINOPHEN\HYDROCODONE BITARTRATE
  28. MIRTAZAPINE. [Concomitant]
     Active Substance: MIRTAZAPINE

REACTIONS (3)
  - Cough [Recovered/Resolved]
  - Pneumothorax [Recovered/Resolved]
  - Dyspnoea [Unknown]

NARRATIVE: CASE EVENT DATE: 20141203
